FAERS Safety Report 7418922-6 (Version None)
Quarter: 2011Q2

REPORT INFORMATION
  Report Type: 
  Country: None (occurrence: None)
  Receive Date: 20110407
  Receipt Date: 20110323
  Transmission Date: 20111010
  Serious: Yes (Death)
  Sender: FDA-Public Use
  Company Number: AUR-APL-2011-01069

PATIENT
  Age: 81 Year
  Sex: Male

DRUGS (3)
  1. FUSIDATE SODIUM [Suspect]
     Indication: DIABETIC FOOT
  2. FLUCLOXACILLIN [Concomitant]
  3. SIMVASTATIN [Suspect]
     Indication: OSTEOMYELITIS
     Dosage: 40 MG,

REACTIONS (4)
  - DRUG INTERACTION [None]
  - RENAL FAILURE ACUTE [None]
  - RHABDOMYOLYSIS [None]
  - TOXICITY TO VARIOUS AGENTS [None]
